FAERS Safety Report 24118762 (Version 1)
Quarter: 2024Q3

REPORT INFORMATION
  Report Type: Spontaneous
  Country: FR (occurrence: FR)
  Receive Date: 20240722
  Receipt Date: 20240722
  Transmission Date: 20241016
  Serious: Yes (Other)
  Sender: MYLAN
  Company Number: FR-MYLANLABS-2024M1066102

PATIENT
  Sex: Male

DRUGS (6)
  1. VENLAFAXINE [Suspect]
     Active Substance: VENLAFAXINE HYDROCHLORIDE
     Indication: Depression
     Dosage: 1 DOSAGE FORM, QD
     Route: 065
     Dates: start: 20240515, end: 20240523
  2. AMISULPRIDE [Concomitant]
     Active Substance: AMISULPRIDE
     Dosage: UNK
     Route: 065
     Dates: start: 2024
  3. BISOPROLOL [Concomitant]
     Active Substance: BISOPROLOL\BISOPROLOL FUMARATE
     Dosage: UNK
     Route: 065
  4. ENTRESTO [Concomitant]
     Active Substance: SACUBITRIL\VALSARTAN
     Dosage: UNK
     Route: 065
  5. SPIRONOLACTONE [Concomitant]
     Active Substance: SPIRONOLACTONE
     Dosage: UNK
     Route: 065
  6. JARDIANCE [Concomitant]
     Active Substance: EMPAGLIFLOZIN
     Dosage: UNK
     Route: 065

REACTIONS (9)
  - Chest pain [Recovered/Resolved]
  - Chest discomfort [Recovered/Resolved]
  - Alcohol poisoning [Unknown]
  - Dizziness [Unknown]
  - Fatigue [Recovered/Resolved]
  - Depressed mood [Recovered/Resolved]
  - Decreased appetite [Unknown]
  - Weight decreased [Unknown]
  - Overdose [Unknown]

NARRATIVE: CASE EVENT DATE: 20240523
